APPROVED DRUG PRODUCT: TOLMETIN SODIUM
Active Ingredient: TOLMETIN SODIUM
Strength: EQ 600MG BASE
Dosage Form/Route: TABLET;ORAL
Application: A074473 | Product #001
Applicant: RISING PHARMA HOLDINGS INC
Approved: Aug 30, 1994 | RLD: No | RS: Yes | Type: RX